FAERS Safety Report 19411271 (Version 2)
Quarter: 2022Q1

REPORT INFORMATION
  Report Type: Report from Study
  Country: BR (occurrence: BR)
  Receive Date: 20210614
  Receipt Date: 20220211
  Transmission Date: 20220424
  Serious: Yes (Life-Threatening, Hospitalization)
  Sender: FDA-Public Use
  Company Number: BR-GLAXOSMITHKLINE-BR2021019883

PATIENT
  Age: 59 Year
  Sex: Male

DRUGS (43)
  1. PLACEBO [Suspect]
     Active Substance: UNSPECIFIED INGREDIENT
     Indication: COVID-19
     Dosage: UNK
     Dates: start: 20210122
  2. PRECEDEX [Concomitant]
     Active Substance: DEXMEDETOMIDINE HYDROCHLORIDE
     Indication: Sedation
     Dosage: 100 ?G, CO
     Route: 042
     Dates: start: 20210215, end: 20210218
  3. FENTANYL [Concomitant]
     Active Substance: FENTANYL
     Indication: Sedation
     Dosage: 3 DF (AMPOULE), SINGLE
     Route: 042
     Dates: start: 20210217, end: 20210217
  4. TAMSULOSIN [Concomitant]
     Active Substance: TAMSULOSIN
     Indication: Lower urinary tract symptoms
     Dosage: 0.4 MG, 1D
     Route: 048
     Dates: start: 20210304, end: 20210307
  5. TORGENA [Concomitant]
     Indication: Pulmonary sepsis
     Dosage: 2.5 G, TID
     Route: 042
     Dates: start: 20210224, end: 20210302
  6. ECALTA (ANIDULAFUNGIN) [Concomitant]
     Indication: Pneumonia
     Dosage: 100 MG, 1D
     Route: 042
     Dates: start: 20210208, end: 20210215
  7. DOBUTAMINE [Concomitant]
     Active Substance: DOBUTAMINE HYDROCHLORIDE
     Indication: Septic shock
     Dosage: 5 MG, CO
     Route: 042
     Dates: start: 20210209, end: 20210209
  8. FORTAZ (CEFTAZIDIME) [Concomitant]
     Indication: Pneumonia
     Dosage: 1 G, TID
     Route: 042
     Dates: start: 20210203, end: 20210208
  9. KETAMINE [Concomitant]
     Active Substance: KETAMINE
     Indication: Sedation
     Dosage: 100 MG, CO
     Route: 042
     Dates: start: 20210207, end: 20210208
  10. HYDROCORTISONE [Concomitant]
     Active Substance: HYDROCORTISONE
     Indication: Pneumonia
     Dosage: 100 MG, 1D
     Route: 042
     Dates: start: 20210208, end: 20210223
  11. AMIKACIN [Concomitant]
     Active Substance: AMIKACIN
     Indication: Pneumonia
     Dosage: 100 MG, 1D
     Route: 042
     Dates: start: 20210210, end: 20210210
  12. AMBISOME [Concomitant]
     Active Substance: AMPHOTERICIN B
     Indication: Pneumonia
     Dosage: 250 MG, 1D
     Route: 042
     Dates: start: 20210216, end: 20210223
  13. MEROPENEM [Concomitant]
     Active Substance: MEROPENEM
     Indication: Pneumonia
     Dosage: 1 G, TID
     Route: 042
     Dates: start: 20210208, end: 20210211
  14. MEROPENEM [Concomitant]
     Active Substance: MEROPENEM
     Dosage: 1 G, BID
     Route: 042
     Dates: start: 20210211, end: 20210222
  15. HEMOFOL (HEPARIN) [Concomitant]
     Indication: Thrombosis prophylaxis
     Dosage: 10000 DF, TID
     Route: 058
     Dates: start: 20210218, end: 20210317
  16. FLUIMUCIL (ACETYLCYSTEINE) [Concomitant]
     Indication: Productive cough
     Dosage: 600 MG, BID
     Route: 048
     Dates: start: 20210207, end: 20210321
  17. AEROLIN (SALBUTAMOL) [Concomitant]
     Indication: Dyspnoea
     Dosage: 400 ?G, 6D
     Route: 055
     Dates: start: 20210207, end: 20210223
  18. ENOXAPARIN [Concomitant]
     Active Substance: ENOXAPARIN
     Indication: Thrombosis
     Dosage: 40 MG, SINGLE
     Route: 058
     Dates: start: 20210126, end: 20210126
  19. ENOXAPARIN [Concomitant]
     Active Substance: ENOXAPARIN
     Dosage: 80 MG, SINGLE
     Route: 058
     Dates: start: 20210126, end: 20210209
  20. NOREPINEPHRINE [Concomitant]
     Active Substance: NOREPINEPHRINE
     Indication: Septic shock
     Dosage: 8 MG, CO
     Route: 042
     Dates: start: 20210129, end: 20210203
  21. NOREPINEPHRINE [Concomitant]
     Active Substance: NOREPINEPHRINE
     Indication: Hypotension
     Dosage: 4 MG, CO
     Route: 042
     Dates: start: 20210207, end: 20210212
  22. ROCURONIUM [Concomitant]
     Active Substance: ROCURONIUM BROMIDE
     Indication: Neuromuscular blockade
     Dosage: 500 MG, CO
     Route: 042
     Dates: start: 20210129, end: 20210202
  23. ROCURONIUM [Concomitant]
     Active Substance: ROCURONIUM BROMIDE
     Dosage: 50 MG, CO
     Route: 042
     Dates: start: 20210207, end: 20210213
  24. MIDAZOLAM [Concomitant]
     Active Substance: MIDAZOLAM
     Indication: Sedation
     Dosage: 1500 MG, CO
     Route: 042
     Dates: start: 20210129, end: 20210204
  25. MIDAZOLAM [Concomitant]
     Active Substance: MIDAZOLAM
     Dosage: 30 ML, CO
     Route: 042
     Dates: start: 20210208, end: 20210214
  26. MIDAZOLAM [Concomitant]
     Active Substance: MIDAZOLAM
     Dosage: 10 ML, SINGLE
     Route: 042
     Dates: start: 20210217, end: 20210217
  27. FENTANYL [Concomitant]
     Active Substance: FENTANYL
     Indication: Induction of anaesthesia
     Dosage: 100 ?G, SINGLE
     Route: 042
     Dates: start: 20210129, end: 20210129
  28. FENTANYL [Concomitant]
     Active Substance: FENTANYL
     Indication: Analgesic therapy
     Dosage: 2500 ?G, CO
     Route: 042
     Dates: start: 20210129, end: 20210215
  29. SUCCINYLCHOLINE [Concomitant]
     Active Substance: SUCCINYLCHOLINE
     Indication: Induction of anaesthesia
     Dosage: 100 MG, 1D
     Route: 042
     Dates: start: 20210129, end: 20210129
  30. VANCOMYCIN [Concomitant]
     Active Substance: VANCOMYCIN
     Indication: Septic shock
     Dosage: 1 G, BID
     Route: 042
     Dates: start: 20210131, end: 20210205
  31. VANCOMYCIN [Concomitant]
     Active Substance: VANCOMYCIN
     Indication: Pneumonia
     Dosage: 1 G, BID
     Route: 042
     Dates: start: 20210208, end: 20210210
  32. VANCOMYCIN [Concomitant]
     Active Substance: VANCOMYCIN
     Dosage: 1 G, 1D
     Route: 042
     Dates: start: 20210211, end: 20210211
  33. VANCOMYCIN [Concomitant]
     Active Substance: VANCOMYCIN
     Dosage: 1 G, 1D
     Route: 042
     Dates: start: 20210212, end: 20210218
  34. PIPERACILLIN AND TAZOBACTAM [Concomitant]
     Active Substance: PIPERACILLIN SODIUM\TAZOBACTAM SODIUM
     Indication: Septic shock
     Dosage: 4.5 G, QID
     Route: 042
     Dates: start: 20210131, end: 20210203
  35. PROPOFOL [Concomitant]
     Active Substance: PROPOFOL
     Indication: Endotracheal intubation
     Dosage: 2 DF (AMPOULE), 1D
     Route: 042
     Dates: start: 20210129, end: 20210129
  36. PRECEDEX (DEXMEDETOMIDINE) [Concomitant]
     Indication: Agitation
     Dosage: 400 ?G, CO
     Route: 042
     Dates: start: 20210204, end: 20210208
  37. PRECEDEX (DEXMEDETOMIDINE) [Concomitant]
     Dosage: 0.02 DF, CO
     Route: 042
     Dates: start: 20210129, end: 20210129
  38. DIPYRONE [Concomitant]
     Active Substance: DIPYRONE
     Indication: Pyrexia
     Dosage: 1 G, QID
     Route: 048
     Dates: start: 20210124, end: 20210125
  39. DIPYRONE [Concomitant]
     Active Substance: DIPYRONE
     Dosage: 1 G, SINGLE
     Route: 042
     Dates: start: 20210220, end: 20210220
  40. LEVOCETIRIZINE + MONTELUKAST [Concomitant]
     Indication: Cough
     Dosage: 1 DF, 1D
     Route: 048
     Dates: start: 20210123, end: 20210126
  41. DEXAMETHASONE [Concomitant]
     Active Substance: DEXAMETHASONE
     Indication: COVID-19
     Dosage: 10 MG, 1D
     Route: 042
     Dates: start: 20210126, end: 20210204
  42. CEFTRIAXONE [Concomitant]
     Active Substance: CEFTRIAXONE
     Indication: Pneumonia
     Dosage: 1 G, BID
     Route: 042
     Dates: start: 20210126, end: 20210128
  43. ESOMEPRAZOLE [Concomitant]
     Active Substance: ESOMEPRAZOLE
     Indication: Prophylaxis against gastrointestinal ulcer
     Dosage: 40 MG, 1D
     Route: 042
     Dates: start: 20210126, end: 20210324

REACTIONS (1)
  - COVID-19 pneumonia [Recovered/Resolved]

NARRATIVE: CASE EVENT DATE: 20210124
